FAERS Safety Report 9527567 (Version 1)
Quarter: 2013Q3

REPORT INFORMATION
  Report Type: Spontaneous
  Country: US (occurrence: None)
  Receive Date: 20130913
  Receipt Date: 20130913
  Transmission Date: 20140515
  Serious: Yes (Other)
  Sender: FDA-Public Use
  Company Number: None

PATIENT
  Age: 19 Year
  Sex: Female
  Weight: 54.43 kg

DRUGS (1)
  1. NUVIGIL [Suspect]
     Indication: NARCOLEPSY
     Dosage: 250MG  ONCE DAILY  TAKEN BY MOUTH
     Route: 048
     Dates: start: 20130827, end: 20130829

REACTIONS (8)
  - Blister [None]
  - Ulcer [None]
  - Stomatitis [None]
  - Decreased appetite [None]
  - Epigastric discomfort [None]
  - Nausea [None]
  - Vomiting [None]
  - Wrong technique in drug usage process [None]
